FAERS Safety Report 16753829 (Version 3)
Quarter: 2019Q4

REPORT INFORMATION
  Report Type: Other
  Country: GB (occurrence: GB)
  Receive Date: 20190829
  Receipt Date: 20191106
  Transmission Date: 20200122
  Serious: Yes (Hospitalization, Other)
  Sender: FDA-Public Use
  Company Number: GB-ASPEN-GLO2019GB008937

PATIENT
  Age: 78 Year
  Sex: Female
  Weight: 79.2 kg

DRUGS (18)
  1. BORTEZOMIB. [Suspect]
     Active Substance: BORTEZOMIB
     Indication: PLASMA CELL MYELOMA
     Dosage: 2.5 MG. CYCLE 3 DAY 8 DOSING
     Route: 058
     Dates: start: 20190726, end: 20190813
  2. LENALIDOMIDE [Suspect]
     Active Substance: LENALIDOMIDE
     Indication: PLASMA CELL MYELOMA
     Dosage: 10 ?G
     Route: 065
  3. IMODIUM [Concomitant]
     Active Substance: LOPERAMIDE HYDROCHLORIDE
     Dosage: 16 MG, QD
     Route: 048
     Dates: start: 20190622, end: 20190624
  4. ZOMETA [Concomitant]
     Active Substance: ZOLEDRONIC ACID
     Dosage: 2 MG, 1 DOSE MONTHLY
     Route: 042
     Dates: start: 20190604
  5. DEXAMETHASONE. [Suspect]
     Active Substance: DEXAMETHASONE
     Indication: PLASMA CELL MYELOMA
     Dosage: 20 ?G
     Route: 065
  6. CITALOPRAM [Concomitant]
     Active Substance: CITALOPRAM HYDROBROMIDE
     Indication: DEPRESSION
     Dosage: 20 MG, QD
     Route: 048
     Dates: start: 200909
  7. COTRIMOXAZOLE [Concomitant]
     Active Substance: SULFAMETHOXAZOLE\TRIMETHOPRIM
     Indication: PROPHYLAXIS
     Dosage: 1440 MG, 1 DOSE WEEKLY
     Route: 048
     Dates: start: 20190503
  8. LEVOTHYROXINE. [Concomitant]
     Active Substance: LEVOTHYROXINE
     Indication: HYPOTHYROIDISM
     Dosage: 50 MG, QD
     Route: 048
     Dates: start: 201403
  9. IBUPROFEN. [Concomitant]
     Active Substance: IBUPROFEN
     Indication: ARTHRALGIA
     Dosage: 400 MG
     Route: 048
     Dates: start: 20190630
  10. ZOMETA [Concomitant]
     Active Substance: ZOLEDRONIC ACID
     Indication: OSTEOPOROSIS PROPHYLAXIS
     Dosage: 1600 MG, QD
     Route: 048
     Dates: start: 20190524, end: 20190607
  11. METANIUM [Concomitant]
     Indication: PRODUCT USED FOR UNKNOWN INDICATION
     Dosage: 3 UNK, QD
     Route: 065
     Dates: start: 20170630
  12. PARACETAMOL [Concomitant]
     Active Substance: ACETAMINOPHEN
     Indication: PAIN
     Dosage: 4 G, QD
     Route: 048
     Dates: start: 20190628
  13. IMODIUM [Concomitant]
     Active Substance: LOPERAMIDE HYDROCHLORIDE
     Dosage: 2 MG
     Route: 048
     Dates: start: 201111
  14. IMODIUM [Concomitant]
     Active Substance: LOPERAMIDE HYDROCHLORIDE
     Indication: DIARRHOEA
     Dosage: 4 MG
     Route: 048
     Dates: start: 20190622, end: 20190624
  15. FYBOGEL [Concomitant]
     Active Substance: PLANTAGO OVATA SEED
     Indication: CONSTIPATION
     Dosage: 2 DF, QD
     Route: 048
     Dates: start: 20160630
  16. OMEPRAZOLE. [Concomitant]
     Active Substance: OMEPRAZOLE
     Indication: GASTROOESOPHAGEAL REFLUX DISEASE
     Dosage: 20 MG, QD
     Route: 048
     Dates: start: 201202
  17. ENOXAPARIN [Concomitant]
     Active Substance: ENOXAPARIN
     Indication: THROMBOSIS PROPHYLAXIS
     Dosage: 40 MG, QD
     Route: 058
     Dates: start: 20190503
  18. SELENIUM ACE [Concomitant]
     Indication: PRODUCT USED FOR UNKNOWN INDICATION
     Dosage: 1 DF, QD
     Route: 048
     Dates: start: 201903

REACTIONS (3)
  - Orthostatic hypotension [Recovered/Resolved]
  - Neuropathy peripheral [Unknown]
  - Diarrhoea [Recovered/Resolved]

NARRATIVE: CASE EVENT DATE: 20190731
